FAERS Safety Report 7150306-0 (Version None)
Quarter: 2010Q4

REPORT INFORMATION
  Report Type: 
  Country: None (occurrence: None)
  Receive Date: 20101123
  Receipt Date: 20101108
  Transmission Date: 20110411
  Serious: Yes (Hospitalization)
  Sender: FDA-Public Use
  Company Number: 021094

PATIENT
  Sex: Female
  Weight: 70.5 kg

DRUGS (11)
  1. CIMZIA [Suspect]
     Indication: CROHN'S DISEASE
     Dosage: (SUBCUTANEOUS) ; (400 MG 1X/4 WEEKS SUBCUTANEOUS)
     Route: 058
     Dates: start: 20100908
  2. CIMZIA [Suspect]
     Indication: CROHN'S DISEASE
     Dosage: (SUBCUTANEOUS) ; (400 MG 1X/4 WEEKS SUBCUTANEOUS)
     Route: 058
     Dates: start: 20101027
  3. CIPRO [Concomitant]
  4. CYANOCOBALAMIN [Concomitant]
  5. COLACE [Concomitant]
  6. ANUSOL-HC /00028604/ [Concomitant]
  7. LEVSIN/SL [Concomitant]
  8. IRON [Concomitant]
  9. FLAGYL [Concomitant]
  10. IMODIUM ADVANCED /01762101/ [Concomitant]
  11. LOMOTIL /00034001/ [Concomitant]

REACTIONS (4)
  - CONSTIPATION [None]
  - ENTERITIS [None]
  - INTESTINAL OBSTRUCTION [None]
  - MUSCLE FATIGUE [None]
